FAERS Safety Report 15534982 (Version 2)
Quarter: 2019Q4

REPORT INFORMATION
  Report Type: Spontaneous
  Country: US (occurrence: US)
  Receive Date: 20181022
  Receipt Date: 20191023
  Transmission Date: 20200122
  Serious: No
  Sender: FDA-Public Use
  Company Number: US-AUROBINDO-AUR-APL-2018-037940

PATIENT

DRUGS (3)
  1. ALFUZOSIN HYDROCHLORIDE EXTENDED RELEASE [Suspect]
     Active Substance: ALFUZOSIN HYDROCHLORIDE
     Indication: DYSURIA
     Dosage: 10 MILLIGRAM, DAILY
     Route: 048
  2. LOSARTAN POTASSIUM/HYDROCHLOROTHIAZIDE [Concomitant]
     Active Substance: HYDROCHLOROTHIAZIDE\LOSARTAN POTASSIUM
     Indication: PRODUCT USED FOR UNKNOWN INDICATION
  3. AMLODIPINE BESYLATE TABLETS 10 MG [Suspect]
     Active Substance: AMLODIPINE BESYLATE
     Indication: HYPERTENSION
     Dosage: UNK

REACTIONS (7)
  - Oropharyngeal pain [Recovered/Resolved]
  - Product use complaint [Recovered/Resolved]
  - Foreign body in respiratory tract [Recovered/Resolved]
  - Peripheral swelling [Recovered/Resolved]
  - Lymphadenopathy [Recovered/Resolved]
  - Product dose omission [Recovered/Resolved]
  - Product design issue [Unknown]
